FAERS Safety Report 21067027 (Version 1)
Quarter: 2022Q3

REPORT INFORMATION
  Report Type: Spontaneous
  Country: ES (occurrence: ES)
  Receive Date: 20220712
  Receipt Date: 20220712
  Transmission Date: 20221027
  Serious: Yes (Other)
  Sender: FDA-Public Use
  Company Number: ES-CELLTRION INC.-2022ES010759

PATIENT

DRUGS (2)
  1. RITUXIMAB [Suspect]
     Active Substance: RITUXIMAB
     Indication: Ocular pemphigoid
     Dosage: 375 MG/M2 AT 2-WEEK INTERVAL ADMINISTERED TWICE
     Route: 042
  2. DAPSONE [Suspect]
     Active Substance: DAPSONE
     Indication: Ocular pemphigoid
     Dosage: 2 MG/KG/D AS MAINTENANCE TREATMENT
     Route: 048

REACTIONS (4)
  - Disease complication [Recovered/Resolved]
  - Eye operation [Unknown]
  - Drug effective for unapproved indication [Unknown]
  - Off label use [Unknown]
